FAERS Safety Report 17218068 (Version 1)
Quarter: 2019Q4

REPORT INFORMATION
  Report Type: Spontaneous
  Country: FR (occurrence: FR)
  Receive Date: 20191231
  Receipt Date: 20191231
  Transmission Date: 20200122
  Serious: Yes (Other)
  Sender: FDA-Public Use
  Company Number: FR-TEVA-2019-FR-1158993

PATIENT
  Age: 50 Year
  Sex: Male

DRUGS (3)
  1. IBUPROFENE [Suspect]
     Active Substance: IBUPROFEN
     Indication: PAIN
     Dosage: UNDESIGNED DOSAGE BUT HIGH DOSES
     Route: 048
     Dates: start: 20191016, end: 20191020
  2. CODEINE [Suspect]
     Active Substance: CODEINE
     Indication: PAIN
     Dosage: UNKNOWN DOSAGE
     Route: 048
     Dates: start: 20191019, end: 20191020
  3. DIAZEPAM. [Suspect]
     Active Substance: DIAZEPAM
     Indication: PAIN
     Dosage: UNKNOWN DOSAGE
     Route: 048
     Dates: start: 20191021, end: 20191024

REACTIONS (1)
  - Cholestasis [Recovering/Resolving]

NARRATIVE: CASE EVENT DATE: 20191023
